FAERS Safety Report 4457897-9 (Version None)
Quarter: 2004Q3

REPORT INFORMATION
  Report Type: 
  Country: None (occurrence: None)
  Receive Date: 20040917
  Receipt Date: 20040609
  Transmission Date: 20050211
  Serious: Yes (Other)
  Sender: FDA-Public Use
  Company Number: US-JNJFOC-20040603541

PATIENT
  Age: 34 Year
  Sex: Female

DRUGS (4)
  1. TOPAMAX [Suspect]
     Indication: ANXIETY
     Dosage: 50-100 MG/DAY
  2. TOPAMAX [Suspect]
     Indication: DEPRESSION
     Dosage: 50-100 MG/DAY
  3. DEXTROSTAT (DEXAMFETAMINE SULFATE) [Concomitant]
  4. LEXAPRO [Concomitant]

REACTIONS (2)
  - BLOOD BICARBONATE DECREASED [None]
  - THERAPEUTIC RESPONSE UNEXPECTED [None]
